FAERS Safety Report 7555519-1 (Version None)
Quarter: 2011Q2

REPORT INFORMATION
  Report Type: 
  Country: None (occurrence: None)
  Receive Date: 20110617
  Receipt Date: 20040105
  Transmission Date: 20111010
  Serious: Yes (Hospitalization, Other)
  Sender: FDA-Public Use
  Company Number: PHHO2003VE07519

PATIENT
  Sex: Female

DRUGS (4)
  1. MANIDON [Concomitant]
  2. DIOVAN HCT [Suspect]
     Dosage: 80 MG, BID
     Route: 048
     Dates: start: 20020901, end: 20030101
  3. AMLODIPINE [Concomitant]
  4. DIAMICRON [Concomitant]
     Indication: DIABETES MELLITUS
     Dosage: 80 MG, QD
     Dates: start: 20020901, end: 20030101

REACTIONS (5)
  - PREMATURE SEPARATION OF PLACENTA [None]
  - HYPERTENSION [None]
  - SWELLING [None]
  - ABORTION SPONTANEOUS [None]
  - DRUG EXPOSURE DURING PREGNANCY [None]
